FAERS Safety Report 12254831 (Version 1)
Quarter: 2016Q2

REPORT INFORMATION
  Report Type: Spontaneous
  Country: BR (occurrence: BR)
  Receive Date: 20160411
  Receipt Date: 20160411
  Transmission Date: 20160815
  Serious: Yes (Other)
  Sender: FDA-Public Use
  Company Number: BR-WATSON-2016-07085

PATIENT
  Age: 71 Year
  Sex: Female

DRUGS (1)
  1. PREDNISONE (UNKNOWN) [Suspect]
     Active Substance: PREDNISONE
     Indication: ENDOCRINE DISORDER
     Dosage: 25 MG, DAILY
     Route: 065

REACTIONS (1)
  - Body tinea [Recovered/Resolved]
